FAERS Safety Report 22704990 (Version 3)
Quarter: 2023Q4

REPORT INFORMATION
  Report Type: Spontaneous
  Country: US (occurrence: US)
  Receive Date: 20230714
  Receipt Date: 20231012
  Transmission Date: 20240110
  Serious: No
  Sender: FDA-Public Use
  Company Number: US-BRISTOL-MYERS SQUIBB COMPANY-2023-099442

PATIENT
  Age: 68 Year
  Sex: Male

DRUGS (2)
  1. ZEPOSIA [Suspect]
     Active Substance: OZANIMOD HYDROCHLORIDE
     Indication: Product used for unknown indication
     Dosage: DOSE : UNAVAILABLE;     FREQ : TAKE 1 CAPSULE ONCE DAILY
     Route: 048
  2. MELOXICAM [Suspect]
     Active Substance: MELOXICAM
     Indication: Product used for unknown indication

REACTIONS (2)
  - Hypertension [Recovered/Resolved]
  - Adverse event [Unknown]
